FAERS Safety Report 8623089-2 (Version None)
Quarter: 2012Q3

REPORT INFORMATION
  Report Type: 
  Country: None (occurrence: None)
  Receive Date: 20120827
  Receipt Date: 20120821
  Transmission Date: 20120928
  Serious: Yes (Death, Other)
  Sender: FDA-Public Use
  Company Number: DE-JNJFOC-20120811864

PATIENT

DRUGS (10)
  1. ABCIXIMAB [Suspect]
     Dosage: SUBSEQUENT 12 HOUR CONTINUOUS INTRAVENOUS INFUSION
     Route: 022
  2. ABCIXIMAB [Suspect]
     Dosage: INTRAVENOUS BOLUS
     Route: 040
  3. HEPARIN [Concomitant]
     Route: 065
  4. BETA BLOCKERS, NOS [Concomitant]
     Route: 065
  5. ABCIXIMAB [Suspect]
     Indication: PERCUTANEOUS CORONARY INTERVENTION
     Dosage: INTRACORONARY BOLUS
     Route: 022
  6. STATINS [Concomitant]
     Route: 065
  7. CLOPIDEGREL [Concomitant]
     Route: 065
  8. ASPIRIN [Concomitant]
     Route: 065
  9. ABCIXIMAB [Suspect]
     Dosage: SUBSEQUENT 12 HOUR CONTINUOUS INTRAVENOUS INFUSION
     Route: 040
  10. ANGIOTENSIN-CONVERTING ENZYME INHIBITORS [Concomitant]
     Route: 065

REACTIONS (3)
  - MYOCARDIAL INFARCTION [None]
  - DEATH [None]
  - HAEMORRHAGE [None]
